FAERS Safety Report 8163744-4 (Version None)
Quarter: 2012Q1

REPORT INFORMATION
  Report Type: 
  Country: None (occurrence: None)
  Receive Date: 20120224
  Receipt Date: 20120215
  Transmission Date: 20120608
  Serious: Yes (Life-Threatening, Hospitalization)
  Sender: FDA-Public Use
  Company Number: JP-GENZYME-FABR-1002218

PATIENT
  Sex: Male

DRUGS (5)
  1. FABRAZYME [Suspect]
     Dosage: 35 MG, Q2W
     Route: 042
     Dates: start: 20090910, end: 20100626
  2. FABRAZYME [Suspect]
     Dosage: 70 MG, Q2W
     Route: 042
     Dates: start: 20040522, end: 20091027
  3. FABRAZYME [Suspect]
     Dosage: 35 MG, Q4W
     Route: 042
     Dates: start: 20100710, end: 20100911
  4. FABRAZYME [Suspect]
     Dosage: 35 MG, Q2W
     Route: 042
     Dates: start: 20101009, end: 20101023
  5. FABRAZYME [Suspect]
     Indication: FABRY'S DISEASE
     Dosage: 70 MG, UNK
     Route: 042
     Dates: start: 20101113, end: 20100101

REACTIONS (1)
  - VENTRICULAR FIBRILLATION [None]
